FAERS Safety Report 17065632 (Version 1)
Quarter: 2019Q4

REPORT INFORMATION
  Report Type: Spontaneous
  Country: US (occurrence: US)
  Receive Date: 20191122
  Receipt Date: 20191122
  Transmission Date: 20200122
  Serious: Yes (Hospitalization, Other)
  Sender: FDA-Public Use
  Company Number: US-BRACCO-2019US01565

PATIENT
  Age: 46 Year
  Sex: Female

DRUGS (8)
  1. LUMASON [Suspect]
     Active Substance: SULFUR HEXAFLUORIDE
     Indication: ECHOCARDIOGRAM
     Dosage: 2.5 ML, SINGLE
     Route: 042
     Dates: start: 20190325, end: 20190325
  2. SOTALOL. [Concomitant]
     Active Substance: SOTALOL
  3. NORCO [Concomitant]
     Active Substance: ACETAMINOPHEN\HYDROCODONE BITARTRATE
  4. ELIQUIS [Concomitant]
     Active Substance: APIXABAN
  5. ALLEGRA [Concomitant]
     Active Substance: FEXOFENADINE HYDROCHLORIDE
  6. XALATAN [Concomitant]
     Active Substance: LATANOPROST
  7. MILRINONE [Concomitant]
     Active Substance: MILRINONE
     Dosage: 0.375 MCG/KG/MIN
     Route: 042
  8. SPIRONOLACTONE. [Concomitant]
     Active Substance: SPIRONOLACTONE

REACTIONS (1)
  - Hypersensitivity [Unknown]

NARRATIVE: CASE EVENT DATE: 20190325
